FAERS Safety Report 16236837 (Version 1)
Quarter: 2019Q2

REPORT INFORMATION
  Report Type: Spontaneous
  Country: GB (occurrence: GB)
  Receive Date: 20190425
  Receipt Date: 20190425
  Transmission Date: 20190711
  Serious: Yes (Other)
  Sender: FDA-Public Use
  Company Number: GB-TEVA-2019-GB-1041654

PATIENT
  Age: 72 Year
  Sex: Female
  Weight: 70 kg

DRUGS (7)
  1. METRONIDAZOLE. [Concomitant]
     Active Substance: METRONIDAZOLE
     Dosage: 2 DOSAGE FORMS DAILY; APPLY
     Dates: start: 20190219, end: 20190319
  2. HYDROCORTISONE. [Concomitant]
     Active Substance: HYDROCORTISONE
     Dosage: 2 DOSAGE FORMS DAILY; APPLY
     Dates: start: 20190212, end: 20190219
  3. SALBUTAMOL [Concomitant]
     Active Substance: ALBUTEROL
     Dosage: 2 DOSAGE FORMS DAILY;
     Route: 055
     Dates: start: 20180926
  4. FLUCLOXACILLIN [Concomitant]
     Active Substance: FLUCLOXACILLIN
     Dosage: 4 DOSAGE FORMS DAILY;
     Dates: start: 20190206, end: 20190213
  5. DERMOL [Concomitant]
     Active Substance: BENZALKONIUM CHLORIDE\CHLORHEXIDINE HYDROCHLORIDE\ISOPROPYL MYRISTATE\PARAFFIN
     Dosage: USE AS DIRECTED
     Dates: start: 20190212, end: 20190312
  6. QVAR [Suspect]
     Active Substance: BECLOMETHASONE DIPROPIONATE
     Route: 055
     Dates: start: 20171122
  7. DOXYCYCLINE. [Concomitant]
     Active Substance: DOXYCYCLINE
     Dosage: TWO NOW THEN ONE DAILY
     Dates: start: 20190321

REACTIONS (1)
  - Perioral dermatitis [Not Recovered/Not Resolved]
